FAERS Safety Report 19221435 (Version 2)
Quarter: 2021Q3

REPORT INFORMATION
  Report Type: Spontaneous
  Country: IN (occurrence: IN)
  Receive Date: 20210505
  Receipt Date: 20210923
  Transmission Date: 20211014
  Serious: Yes (Death)
  Sender: FDA-Public Use
  Company Number: IN-PFIZER INC-2018020969

PATIENT
  Age: 73 Year
  Sex: Female

DRUGS (1)
  1. CRIZALK [Suspect]
     Active Substance: CRIZOTINIB
     Indication: ALK GENE REARRANGEMENT ASSAY
     Dosage: 250 MG, 2X/DAY
     Route: 048
     Dates: start: 20170929

REACTIONS (3)
  - Dyspnoea [Fatal]
  - COVID-19 [Fatal]
  - Neoplasm progression [Fatal]
